FAERS Safety Report 6368069-5 (Version None)
Quarter: 2009Q3

REPORT INFORMATION
  Report Type: 
  Country: None (occurrence: None)
  Receive Date: 20090922
  Receipt Date: 20090911
  Transmission Date: 20100115
  Serious: Yes (Disabling)
  Sender: FDA-Public Use
  Company Number: DK-BRACCO-000026

PATIENT
  Sex: Male

DRUGS (6)
  1. CONTRAST MEDIA [Suspect]
     Indication: DIAGNOSTIC PROCEDURE
     Route: 042
     Dates: start: 20061128, end: 20061128
  2. NEORECORMON [Concomitant]
     Route: 065
  3. PREDNISOLONE [Concomitant]
     Route: 065
  4. PAMOL [Concomitant]
     Route: 065
  5. PANTOPRAZOLE [Concomitant]
     Route: 065
  6. CETIRIZINE HCL [Concomitant]
     Route: 065

REACTIONS (1)
  - NEPHROGENIC SYSTEMIC FIBROSIS [None]
